FAERS Safety Report 18078025 (Version 1)
Quarter: 2020Q3

REPORT INFORMATION
  Report Type: Spontaneous
  Country: US (occurrence: US)
  Receive Date: 20200728
  Receipt Date: 20200728
  Transmission Date: 20201103
  Serious: Yes (Hospitalization, Other)
  Sender: FDA-Public Use
  Company Number: US-STRIDES ARCOLAB LIMITED-2019SP010131

PATIENT
  Age: 36 Year
  Sex: Male

DRUGS (7)
  1. PREDNISOLONE. [Suspect]
     Active Substance: PREDNISOLONE
     Dosage: 70 MG/DAY; HIGH?DOSE REGIMEN, TO BE SLOWLY TAPERED OVER SIX TO EIGHT WEEKS
     Route: 065
  2. PREDNISOLONE. [Suspect]
     Active Substance: PREDNISOLONE
     Dosage: 20 MILLIGRAM
     Route: 065
  3. MOXIFLOXACIN. [Suspect]
     Active Substance: MOXIFLOXACIN
     Indication: PNEUMONIA
     Dosage: UNK
     Route: 065
  4. PREDNISOLONE. [Suspect]
     Active Substance: PREDNISOLONE
     Dosage: UNK, TAPERED DOSE SOONER THAN THE ADVISED
     Route: 065
  5. CLARITHROMYCIN. [Suspect]
     Active Substance: CLARITHROMYCIN
     Dosage: UNK
     Route: 065
  6. PREDNISOLONE. [Suspect]
     Active Substance: PREDNISOLONE
     Indication: PNEUMONIA
     Dosage: 60 MILLIGRAM, TO TAPER OVER FOURTEEN DAYS
     Route: 065
  7. CLARITHROMYCIN. [Suspect]
     Active Substance: CLARITHROMYCIN
     Indication: PNEUMONIA
     Dosage: UNK
     Route: 065

REACTIONS (12)
  - Rash [Unknown]
  - Arthralgia [Unknown]
  - Pyrexia [Unknown]
  - Drug ineffective [Unknown]
  - Epstein-Barr virus infection reactivation [Unknown]
  - Dyspnoea [Unknown]
  - Rash morbilliform [Unknown]
  - Drug reaction with eosinophilia and systemic symptoms [Unknown]
  - Headache [Unknown]
  - Tachycardia [Unknown]
  - Human herpesvirus 6 infection reactivation [Unknown]
  - Disease recurrence [Unknown]
